FAERS Safety Report 10020722 (Version 1)
Quarter: 2014Q1

REPORT INFORMATION
  Report Type: Spontaneous
  Country: GB (occurrence: GB)
  Receive Date: 20140319
  Receipt Date: 20140319
  Transmission Date: 20141002
  Serious: Yes (Life-Threatening, Hospitalization)
  Sender: FDA-Public Use
  Company Number: GB-ACCORD-022444

PATIENT
  Age: 54 Year
  Sex: Male

DRUGS (7)
  1. GEMCITABINE/GEMCITABINE HYDROCHLORIDE [Suspect]
     Indication: PRODUCT USED FOR UNKNOWN INDICATION
     Route: 042
  2. VINORELBINE [Suspect]
     Indication: PRODUCT USED FOR UNKNOWN INDICATION
     Route: 042
  3. MABTHERA [Suspect]
     Indication: PRODUCT USED FOR UNKNOWN INDICATION
     Route: 042
  4. IFOSFAMIDE [Suspect]
     Indication: PRODUCT USED FOR UNKNOWN INDICATION
     Route: 042
  5. ACICLOVIR [Concomitant]
     Route: 050
  6. SULFAMETHOXAZOLE/TRIMETHOPRIM [Concomitant]
     Dosage: 160MG/800MG TABLETS
     Route: 048
  7. ALLOPURINOL [Concomitant]

REACTIONS (2)
  - Hypophosphataemia [Unknown]
  - Neutropenic sepsis [Unknown]
